FAERS Safety Report 8232538-3 (Version None)
Quarter: 2012Q1

REPORT INFORMATION
  Report Type: 
  Country: None (occurrence: None)
  Receive Date: 20120323
  Receipt Date: 20120314
  Transmission Date: 20120608
  Serious: Yes (Other)
  Sender: FDA-Public Use
  Company Number: JP-CELGENEUS-087-50794-12022068

PATIENT
  Sex: Male
  Weight: 60 kg

DRUGS (9)
  1. PREDNISOLONE [Concomitant]
     Route: 065
  2. LANSOPRAZOLE [Concomitant]
     Route: 065
  3. VIDAZA [Suspect]
     Dosage: 75 MICROGRAM/SQ. METER
     Route: 041
     Dates: start: 20120213, end: 20120213
  4. GARENOXACIN MESYLATE [Concomitant]
     Route: 065
     Dates: start: 20120210, end: 20120213
  5. GRANISETRON [Concomitant]
     Route: 065
     Dates: start: 20120213, end: 20120213
  6. ALLOPURINOL [Concomitant]
     Route: 065
  7. STEROID [Concomitant]
     Route: 065
     Dates: start: 20120228
  8. ANTIHISTAMINE [Concomitant]
     Route: 065
     Dates: start: 20120228
  9. VIDAZA [Suspect]
     Dosage: 75 MILLIGRAM/SQ. METER
     Route: 041
     Dates: start: 20120227

REACTIONS (2)
  - CEREBRAL INFARCTION [None]
  - PYREXIA [None]
